FAERS Safety Report 18087380 (Version 2)
Quarter: 2020Q3

REPORT INFORMATION
  Report Type: Spontaneous
  Country: US (occurrence: US)
  Receive Date: 20200729
  Receipt Date: 20200826
  Transmission Date: 20201103
  Serious: No
  Sender: FDA-Public Use
  Company Number: US-BAUSCH-BL-2020-020673

PATIENT
  Age: 68 Year
  Sex: Female

DRUGS (3)
  1. LOTEMAX [Suspect]
     Active Substance: LOTEPREDNOL ETABONATE
     Indication: EYE INFLAMMATION
     Dosage: 4 TIMES A DAY FOR 2 WEEKS AND COULD TITRATE DOSE AS REQUIRED
     Route: 047
  2. LOTEMAX [Suspect]
     Active Substance: LOTEPREDNOL ETABONATE
     Indication: DRY EYE
     Dosage: 3 YEARS PRIOR TO DATE OF INITIAL REPORT
     Route: 047
     Dates: start: 2017
  3. LOTEMAX [Suspect]
     Active Substance: LOTEPREDNOL ETABONATE
     Indication: SWELLING OF EYELID

REACTIONS (4)
  - Treatment noncompliance [Unknown]
  - Liquid product physical issue [Unknown]
  - Vision blurred [Recovered/Resolved]
  - Accidental overdose [Unknown]
